FAERS Safety Report 15401701 (Version 1)
Quarter: 2018Q3

REPORT INFORMATION
  Report Type: Spontaneous
  Country: CA (occurrence: CA)
  Receive Date: 20180919
  Receipt Date: 20180919
  Transmission Date: 20181010
  Serious: Yes (Other)
  Sender: FDA-Public Use
  Company Number: CA-CELLTRION INC.-2018CA020137

PATIENT

DRUGS (8)
  1. INFLECTRA [Suspect]
     Active Substance: INFLIXIMAB-DYYB
     Dosage: 285 MG  EVERY 0, 2, 6 WEEKS, THEN EVERY 8 WEEKS
     Route: 042
     Dates: start: 20171218, end: 20180129
  2. INFLECTRA [Suspect]
     Active Substance: INFLIXIMAB-DYYB
     Dosage: 5 MG/KG, EVERY 8 WEEKS
     Route: 042
     Dates: start: 20180312
  3. METHOTREXATE. [Concomitant]
     Active Substance: METHOTREXATE
  4. METHOTREXATE. [Concomitant]
     Active Substance: METHOTREXATE
     Dosage: UNK
  5. INFLECTRA [Suspect]
     Active Substance: INFLIXIMAB-DYYB
     Dosage: 5 MG/KG, EVERY 8 WEEKS
     Route: 042
     Dates: start: 20180507
  6. LYRICA [Concomitant]
     Active Substance: PREGABALIN
     Dosage: UNK
  7. INFLECTRA [Suspect]
     Active Substance: INFLIXIMAB-DYYB
     Indication: PSORIATIC ARTHROPATHY
     Dosage: 285 MG  EVERY 0, 2, 6 WEEKS, THEN EVERY 8 WEEKS
     Route: 042
     Dates: start: 20170511, end: 20171106
  8. INFLECTRA [Suspect]
     Active Substance: INFLIXIMAB-DYYB
     Dosage: 5 MG/KG, EVERY 8 WEEKS( APPROXIMATELY 4.9 MG/KG)
     Route: 042
     Dates: start: 20180709

REACTIONS (3)
  - Incorrect drug administration duration [Unknown]
  - Heart rate decreased [Unknown]
  - Lipoma [Unknown]

NARRATIVE: CASE EVENT DATE: 20180507
